FAERS Safety Report 10914156 (Version 1)
Quarter: 2015Q1

REPORT INFORMATION
  Report Type: Spontaneous
  Country: US (occurrence: None)
  Receive Date: 20150310
  Receipt Date: 20150310
  Transmission Date: 20150721
  Serious: Yes (Other)
  Sender: FDA-Public Use
  Company Number: US-H14001-15-00353

PATIENT
  Age: 36 Year
  Sex: Male

DRUGS (13)
  1. HALOPERIDOL. [Concomitant]
     Active Substance: HALOPERIDOL
  2. CEFEPIME [Concomitant]
     Active Substance: CEFEPIME\CEFEPIME HYDROCHLORIDE
  3. ATOMOXETINE [Concomitant]
     Active Substance: ATOMOXETINE
  4. VECURONIUM [Concomitant]
     Active Substance: VECURONIUM BROMIDE
  5. OXYCODONE [Concomitant]
     Active Substance: OXYCODONE
  6. DIAZEPAM. [Concomitant]
     Active Substance: DIAZEPAM
  7. FENTANYL (FENTANYL) (UNKNOWN) (FENTANYL) [Suspect]
     Active Substance: FENTANYL
     Indication: PAIN
     Route: 041
  8. FENTANYL (FENTANYL) (UNKNOWN) (FENTANYL) [Suspect]
     Active Substance: FENTANYL
     Indication: SEDATIVE THERAPY
     Route: 041
  9. METHADONE [Suspect]
     Active Substance: METHADONE HYDROCHLORIDE
     Indication: ANALGESIC THERAPY
     Dosage: 30 MG, 1 IN 6 HR
  10. LORAZEPAM. [Concomitant]
     Active Substance: LORAZEPAM
  11. CLONAZEPAM. [Concomitant]
     Active Substance: CLONAZEPAM
  12. VANCOMYCIN [Concomitant]
     Active Substance: VANCOMYCIN
  13. VORICONAZOLE. [Concomitant]
     Active Substance: VORICONAZOLE

REACTIONS (11)
  - Delirium [None]
  - Agitation [None]
  - Heart rate increased [None]
  - Myoclonus [None]
  - Serotonin syndrome [None]
  - Blood urea increased [None]
  - White blood cell count increased [None]
  - Hyperreflexia [None]
  - Blood creatinine increased [None]
  - Hyperthermia [None]
  - Blood pressure systolic increased [None]
